FAERS Safety Report 23679134 (Version 1)
Quarter: 2024Q1

REPORT INFORMATION
  Report Type: Spontaneous
  Country: DE (occurrence: DE)
  Receive Date: 20240327
  Receipt Date: 20240327
  Transmission Date: 20240409
  Serious: Yes (Other)
  Sender: FDA-Public Use
  Company Number: DE-ABBVIE-5695001

PATIENT
  Sex: Male

DRUGS (1)
  1. RINVOQ [Suspect]
     Active Substance: UPADACITINIB
     Indication: Rheumatoid arthritis
     Dosage: LAST ADMINISTRATION DOSE DATE: 2024
     Route: 048
     Dates: start: 202401

REACTIONS (6)
  - Lung disorder [Unknown]
  - Angina pectoris [Unknown]
  - Palpitations [Unknown]
  - Gastrointestinal disorder [Unknown]
  - Headache [Unknown]
  - Dysuria [Unknown]

NARRATIVE: CASE EVENT DATE: 20240101
